FAERS Safety Report 5431573-8 (Version None)
Quarter: 2007Q3

REPORT INFORMATION
  Report Type: 
  Country: None (occurrence: None)
  Receive Date: 20070830
  Receipt Date: 20070829
  Transmission Date: 20080115
  Serious: Yes (Other)
  Sender: FDA-Public Use
  Company Number: FR-ELI_LILLY_AND_COMPANY-FR200707005490

PATIENT
  Age: 72 Year
  Sex: Female
  Weight: 60 kg

DRUGS (11)
  1. ZYPREXA [Suspect]
     Indication: DELUSION
     Dosage: 5 MG, DAILY (1/D)
     Route: 048
     Dates: start: 20070615
  2. SIFROL [Concomitant]
     Indication: PARKINSON'S DISEASE
     Dosage: 0.18 MG, OTHER
     Route: 048
  3. LYSANXIA [Concomitant]
     Indication: ANXIETY
     Dosage: 10 MG, DAILY (1/D)
     Route: 048
  4. ACTONEL [Concomitant]
     Indication: OSTEOPOROSIS
     Dosage: 35 MG, WEEKLY (1/W)
     Route: 048
  5. PAROXETINE [Concomitant]
     Indication: DEPRESSION
     Dosage: 20 MG, DAILY (1/D)
     Route: 048
  6. PREVISCAN [Concomitant]
     Dosage: 20 MG, DAILY (1/D)
     Route: 048
  7. FUROSEMIDE [Concomitant]
     Indication: HYPERTENSION
     Dosage: 40 MG, DAILY (1/D)
     Route: 048
  8. PRACTAZIN [Concomitant]
     Indication: HYPERTENSION
     Dosage: 10 MG, DAILY (1/D)
     Route: 048
  9. TANAKAN [Concomitant]
     Route: 048
  10. LEVOTHYROXINE SODIUM [Concomitant]
     Indication: HYPOTHYROIDISM
     Dosage: 25 UG, DAILY (1/D)
     Route: 048
  11. ESBERIVEN                          /00021901/ [Concomitant]
     Route: 048

REACTIONS (1)
  - IRON DEFICIENCY ANAEMIA [None]
